FAERS Safety Report 6190357-6 (Version None)
Quarter: 2009Q2

REPORT INFORMATION
  Report Type: 
  Country: None (occurrence: None)
  Receive Date: 20090514
  Receipt Date: 20090505
  Transmission Date: 20091009
  Serious: Yes (Other)
  Sender: FDA-Public Use
  Company Number: A0783928A

PATIENT
  Sex: Female

DRUGS (1)
  1. PAXIL [Suspect]
     Indication: ANXIETY
     Dosage: 10MG UNKNOWN
     Route: 048
     Dates: start: 20090401, end: 20090501

REACTIONS (7)
  - ANXIETY [None]
  - BLINDNESS [None]
  - EXCESSIVE EYE BLINKING [None]
  - EYE DISORDER [None]
  - FEAR [None]
  - IMPAIRED DRIVING ABILITY [None]
  - VISION BLURRED [None]
